FAERS Safety Report 8415401-4 (Version None)
Quarter: 2012Q2

REPORT INFORMATION
  Report Type: 
  Country: None (occurrence: None)
  Receive Date: 20120530
  Receipt Date: 20120516
  Transmission Date: 20120825
  Serious: Yes (Life-Threatening, Other)
  Sender: FDA-Public Use
  Company Number: AUR-APL-2012-02350

PATIENT
  Age: 68 Year
  Sex: Female

DRUGS (7)
  1. NEURONTIN [Concomitant]
  2. LIPITOR [Concomitant]
  3. TOPAMAX [Concomitant]
  4. VENLAFAXINE HCL [Suspect]
     Indication: MENTAL DISORDER
     Dosage: UNKNOWN
  5. ALPRAZOLAM [Concomitant]
  6. SYNTHROID [Concomitant]
  7. METOPROLOL TARTRATE [Concomitant]

REACTIONS (5)
  - HYPERHIDROSIS [None]
  - PRODUCT SUBSTITUTION ISSUE [None]
  - DYSPNOEA [None]
  - DIZZINESS [None]
  - DISORIENTATION [None]
